FAERS Safety Report 9239186 (Version 1)
Quarter: 2013Q2

REPORT INFORMATION
  Report Type: Spontaneous
  Country: US (occurrence: US)
  Receive Date: 20130418
  Receipt Date: 20130418
  Transmission Date: 20140414
  Serious: No
  Sender: FDA-Public Use
  Company Number: US-MYLANLABS-2012S1012089

PATIENT
  Age: 69 Year
  Sex: Female

DRUGS (4)
  1. VERAPAMIL HCL EXTENDED RELEASE TABLETS, USP [Suspect]
     Indication: HYPERTENSION
     Route: 048
     Dates: start: 20120527, end: 20020530
  2. KOMBIGLYZE [Concomitant]
     Dosage: 5/500MG
     Route: 048
  3. PROZAC [Concomitant]
     Route: 048
  4. DYAZIDE [Concomitant]
     Indication: DIURETIC THERAPY
     Route: 048

REACTIONS (2)
  - Dizziness [Recovered/Resolved]
  - Retching [Recovered/Resolved]
